FAERS Safety Report 11068306 (Version 1)
Quarter: 2015Q2

REPORT INFORMATION
  Report Type: Report from Study
  Country: JP (occurrence: JP)
  Receive Date: 20150427
  Receipt Date: 20150427
  Transmission Date: 20150821
  Serious: Yes (Death)
  Sender: FDA-Public Use
  Company Number: JP-PFIZER INC-2015142009

PATIENT
  Age: 63 Year
  Sex: Female
  Weight: 50 kg

DRUGS (11)
  1. MIYA-BM [Concomitant]
     Active Substance: CLOSTRIDIUM BUTYRICUM SPORES STRAIN M-55
     Dosage: 3 DF, 1X/DAY
     Route: 048
  2. NOVASTAN [Suspect]
     Active Substance: ARGATROBAN
     Indication: ANTICOAGULANT THERAPY
     Dosage: 10 MG, UNK
     Route: 040
     Dates: start: 20141103, end: 20141103
  3. NEXIUM [Concomitant]
     Active Substance: ESOMEPRAZOLE MAGNESIUM
     Indication: PROPHYLAXIS
     Dosage: 10 MG, 1X/DAY
     Route: 048
  4. HEPARIN SODIUM. [Concomitant]
     Active Substance: HEPARIN SODIUM
     Dosage: UNK
     Route: 051
     Dates: start: 20141015
  5. ALESION [Concomitant]
     Active Substance: EPINASTINE HYDROCHLORIDE
     Dosage: 20 MG, 1X/DAY
     Route: 048
  6. SENNOSIDES. [Concomitant]
     Active Substance: SENNOSIDES
     Dosage: 12 MG, 1X/DAY
     Route: 048
  7. PRECIPITATED CALCIUM CARBONATE [Concomitant]
     Active Substance: CALCIUM CARBONATE
     Dosage: 1500 MG, 1X/DAY
     Route: 048
  8. EFFORTIL [Concomitant]
     Active Substance: ETILEFRINE HYDROCHLORIDE
     Indication: BLOOD PRESSURE DECREASED
     Dosage: 20 MG, 1X/DAY
     Route: 042
  9. NOVASTAN [Suspect]
     Active Substance: ARGATROBAN
     Dosage: 25MG/H X 4 HRS
     Route: 041
     Dates: start: 20141103, end: 20141103
  10. NAFAMOSTAT MESILATE [Concomitant]
     Active Substance: NAFAMOSTAT MESYLATE
     Dosage: 160 MG, 1X/DAY
     Route: 051
     Dates: start: 20141016, end: 20141031
  11. AMOBAN [Concomitant]
     Active Substance: ZOPICLONE
     Dosage: 7.5 MG, 1X/DAY
     Route: 048

REACTIONS (1)
  - Cerebral haemorrhage [Fatal]

NARRATIVE: CASE EVENT DATE: 20141103
